FAERS Safety Report 26059544 (Version 1)
Quarter: 2025Q4

REPORT INFORMATION
  Report Type: Spontaneous
  Country: US (occurrence: US)
  Receive Date: 20251118
  Receipt Date: 20251118
  Transmission Date: 20260117
  Serious: No
  Sender: INNOGENIX, LLC
  Company Number: US-Innogenix, LLC-2188771

PATIENT

DRUGS (2)
  1. PROPRANOLOL HYDROCHLORIDE [Suspect]
     Active Substance: PROPRANOLOL HYDROCHLORIDE
     Indication: Tremor
  2. PRIMIDONE [Suspect]
     Active Substance: PRIMIDONE

REACTIONS (1)
  - Somnolence [Unknown]
